FAERS Safety Report 6445638-5 (Version None)
Quarter: 2009Q4

REPORT INFORMATION
  Report Type: 
  Country: None (occurrence: None)
  Receive Date: 20091118
  Receipt Date: 20091118
  Transmission Date: 20100525
  Serious: Yes (Hospitalization)
  Sender: FDA-Public Use
  Company Number: None

PATIENT
  Age: 42 Year
  Sex: Male
  Weight: 98.8842 kg

DRUGS (2)
  1. 5ML OCOFLOX 0.3% DRP AE 6-10-03 [Suspect]
     Indication: CONJUNCTIVITIS
     Dosage: 1 DROP 4X'S DAY FOR 10 DAYS
     Dates: start: 20030610, end: 20030620
  2. 10 ML OCOFLOX 0.3% DRP AE 6-25-03 [Suspect]
     Indication: CONJUNCTIVITIS
     Dosage: 1 DROP 4 X'S DAY FOR 14 DAYS
     Dates: start: 20030625, end: 20030708

REACTIONS (2)
  - ARTHROPOD BITE [None]
  - CONVULSION [None]
